FAERS Safety Report 24370991 (Version 7)
Quarter: 2024Q4

REPORT INFORMATION
  Report Type: Spontaneous
  Country: GB (occurrence: GB)
  Receive Date: 20240927
  Receipt Date: 20241106
  Transmission Date: 20250115
  Serious: Yes (Life-Threatening, Other)
  Sender: MYLAN
  Company Number: GB-MYLANLABS-2024M1087229

PATIENT
  Age: 48 Year
  Sex: Male

DRUGS (7)
  1. CLOZARIL [Suspect]
     Active Substance: CLOZAPINE
     Indication: Schizophrenia
     Dosage: UNK
     Route: 048
     Dates: start: 20230228
  2. CLOZARIL [Suspect]
     Active Substance: CLOZAPINE
     Dosage: UNK, BID (TWICE A DAY, TITRATION COMMENCING AT 12.5MG INCREASING TO 500MG DAILY)
     Route: 048
     Dates: start: 20240926
  3. VALPROATE SODIUM [Suspect]
     Active Substance: VALPROATE SODIUM
     Indication: Product used for unknown indication
     Dosage: UNK
     Route: 065
  4. AMISULPRIDE [Concomitant]
     Active Substance: AMISULPRIDE
     Dosage: 400 MILLIGRAM, BID (TWICE A DAY)
     Route: 048
     Dates: start: 2022
  5. LITHIUM [Concomitant]
     Active Substance: LITHIUM
     Dosage: 500 MILLIGRAM, QD (AT NIGHT)
     Route: 048
     Dates: start: 2022
  6. CLONAZEPAM [Concomitant]
     Active Substance: CLONAZEPAM
     Dosage: 250 MICROGRAM, QD (ONCE A DAY)
     Route: 048
     Dates: start: 2022
  7. CLONAZEPAM [Concomitant]
     Active Substance: CLONAZEPAM
     Dosage: 500 MICROGRAM, QD (AT NIGHT)
     Route: 048
     Dates: start: 2022

REACTIONS (5)
  - Agranulocytosis [Unknown]
  - Neutropenia [Recovered/Resolved]
  - Eosinophil count decreased [Recovered/Resolved]
  - White blood cell count decreased [Recovered/Resolved]
  - Off label use [Unknown]

NARRATIVE: CASE EVENT DATE: 20241003
